FAERS Safety Report 10034252 (Version 1)
Quarter: 2014Q1

REPORT INFORMATION
  Report Type: Spontaneous
  Country: US (occurrence: None)
  Receive Date: 20140324
  Receipt Date: 20140324
  Transmission Date: 20141002
  Serious: Yes (Other)
  Sender: FDA-Public Use
  Company Number: None

PATIENT
  Age: 40 Year
  Sex: Female
  Weight: 88.45 kg

DRUGS (1)
  1. FLEXERIL [Suspect]
     Indication: MUSCLE SPASMS
     Route: 048
     Dates: start: 20140315, end: 20140316

REACTIONS (12)
  - Nasopharyngitis [None]
  - Headache [None]
  - Confusional state [None]
  - Dizziness [None]
  - Palpitations [None]
  - Nervousness [None]
  - Paraesthesia [None]
  - Abnormal sensation in eye [None]
  - Hyperhidrosis [None]
  - Dry mouth [None]
  - Headache [None]
  - Asthenopia [None]
